FAERS Safety Report 8625495-9 (Version None)
Quarter: 2012Q3

REPORT INFORMATION
  Report Type: 
  Country: None (occurrence: None)
  Receive Date: 20120827
  Receipt Date: 20120813
  Transmission Date: 20120928
  Serious: Yes (Other)
  Sender: FDA-Public Use
  Company Number: NO-MYLANLABS-2012S1016733

PATIENT
  Age: 82 Year
  Sex: Male

DRUGS (1)
  1. LOPERAMIDE [Suspect]
     Indication: DIARRHOEA
     Dosage: 20-24 MG PER DAY
     Route: 048

REACTIONS (3)
  - PRODUCT SUBSTITUTION ISSUE [None]
  - DIARRHOEA [None]
  - DRUG INEFFECTIVE [None]
